FAERS Safety Report 8886970 (Version 1)
Quarter: 2012Q4

REPORT INFORMATION
  Report Type: Report from Study
  Country: DK (occurrence: DK)
  Receive Date: 20121105
  Receipt Date: 20121105
  Transmission Date: 20130627
  Serious: Yes (Hospitalization, Other)
  Sender: FDA-Public Use
  Company Number: DK-BRISTOL-MYERS SQUIBB COMPANY-17074782

PATIENT
  Age: 69 Year
  Sex: Female
  Weight: 65 kg

DRUGS (9)
  1. PACLITAXEL [Suspect]
     Indication: FALLOPIAN TUBE CANCER
     Dosage: Interrupted on 28Mar12.Last dose prior to SAE:07Mar12
     Route: 042
     Dates: start: 20120216
  2. PACLITAXEL [Suspect]
     Indication: MALIGNANT PERITONEAL NEOPLASM
     Dosage: Interrupted on 28Mar12.Last dose prior to SAE:07Mar12
     Route: 042
     Dates: start: 20120216
  3. PACLITAXEL [Suspect]
     Indication: OVARIAN EPITHELIAL CANCER
     Dosage: Interrupted on 28Mar12.Last dose prior to SAE:07Mar12
     Route: 042
     Dates: start: 20120216
  4. CARBOPLATIN [Suspect]
     Indication: FALLOPIAN TUBE CANCER
     Dosage: Interrupted on 28Mar12.Last dose prior to SAE:07Mar12
     Route: 042
     Dates: start: 20120216
  5. CARBOPLATIN [Suspect]
     Indication: MALIGNANT PERITONEAL NEOPLASM
     Dosage: Interrupted on 28Mar12.Last dose prior to SAE:07Mar12
     Route: 042
     Dates: start: 20120216
  6. CARBOPLATIN [Suspect]
     Indication: OVARIAN EPITHELIAL CANCER
     Dosage: Interrupted on 28Mar12.Last dose prior to SAE:07Mar12
     Route: 042
     Dates: start: 20120216
  7. BEVACIZUMAB [Suspect]
     Indication: FALLOPIAN TUBE CANCER
     Dosage: Interrupted on 28Mar12.Last dose prior to SAE:07Mar12
     Route: 042
     Dates: start: 20120216
  8. BEVACIZUMAB [Suspect]
     Indication: OVARIAN EPITHELIAL CANCER
     Dosage: Interrupted on 28Mar12.Last dose prior to SAE:07Mar12
     Route: 042
     Dates: start: 20120216
  9. BEVACIZUMAB [Suspect]
     Indication: MALIGNANT PERITONEAL NEOPLASM
     Dosage: Interrupted on 28Mar12.Last dose prior to SAE:07Mar12
     Route: 042
     Dates: start: 20120216

REACTIONS (2)
  - Retroperitoneal abscess [Recovered/Resolved]
  - Multi-organ failure [Unknown]
